FAERS Safety Report 25009297 (Version 1)
Quarter: 2025Q1

REPORT INFORMATION
  Report Type: Spontaneous
  Country: US (occurrence: US)
  Receive Date: 20250225
  Receipt Date: 20250225
  Transmission Date: 20250409
  Serious: Yes (Other)
  Sender: AMGEN
  Company Number: US-AMGEN-USASP2025035512

PATIENT

DRUGS (2)
  1. BEVACIZUMAB [Suspect]
     Active Substance: BEVACIZUMAB
     Indication: Ovarian cancer
     Route: 065
  2. MIRVETUXIMAB SORAVTANSINE-GYNX [Concomitant]
     Active Substance: MIRVETUXIMAB SORAVTANSINE-GYNX
     Indication: Ovarian cancer

REACTIONS (5)
  - Pneumonitis [Unknown]
  - Neuropathy peripheral [Unknown]
  - Infusion related reaction [Unknown]
  - Toxicity to various agents [Unknown]
  - Ocular toxicity [Unknown]
